FAERS Safety Report 4902496-5 (Version None)
Quarter: 2006Q1

REPORT INFORMATION
  Report Type: 
  Country: None (occurrence: None)
  Receive Date: 20060202
  Receipt Date: 20060120
  Transmission Date: 20060701
  Serious: Yes (Hospitalization)
  Sender: FDA-Public Use
  Company Number: 2006011573

PATIENT
  Age: 52 Year
  Sex: Male

DRUGS (1)
  1. ACTIFED [Suspect]
     Indication: RHINORRHOEA
     Dosage: ONE UNIT TWICE DAILY, ORAL
     Route: 048
     Dates: start: 20060111, end: 20060112

REACTIONS (2)
  - ANGIONEUROTIC OEDEMA [None]
  - URTICARIA [None]
